FAERS Safety Report 6251865-2 (Version None)
Quarter: 2009Q2

REPORT INFORMATION
  Report Type: 
  Country: None (occurrence: None)
  Receive Date: 20090626
  Receipt Date: 20080818
  Transmission Date: 20091009
  Serious: Yes (Hospitalization)
  Sender: FDA-Public Use
  Company Number: 582123

PATIENT
  Age: 38 Year
  Sex: Female

DRUGS (1)
  1. CAPECITABINE [Suspect]
     Indication: BREAST CANCER
     Dosage: 3500 MG DAILY ORAL
     Route: 048

REACTIONS (1)
  - ARTERIOSPASM CORONARY [None]
